FAERS Safety Report 6279363-0 (Version None)
Quarter: 2009Q3

REPORT INFORMATION
  Report Type: 
  Country: None (occurrence: None)
  Receive Date: 20090723
  Receipt Date: 20090722
  Transmission Date: 20100115
  Serious: Yes (Death, Life-Threatening, Other)
  Sender: FDA-Public Use
  Company Number: JP-B.I. PHARMACEUTICALS,INC./RIDGEFIELD-2009-BP-07617NB

PATIENT
  Age: 79 Year
  Sex: Female
  Weight: 37 kg

DRUGS (16)
  1. MICARDIS [Suspect]
     Dosage: 80 MG
     Route: 048
     Dates: start: 20090602, end: 20090607
  2. URSO 250 [Concomitant]
     Dosage: 300 MG
     Route: 048
     Dates: start: 20090526, end: 20090609
  3. ARICEPT [Concomitant]
     Dosage: 5 MG
     Route: 048
     Dates: start: 20090526, end: 20090609
  4. AMINOLEBAN [Concomitant]
     Indication: HEPATIC FAILURE
     Dosage: 500 ML
     Route: 042
     Dates: start: 20090529, end: 20090608
  5. PERDIPINE [Concomitant]
     Dosage: 60 MG
     Route: 048
     Dates: start: 20090602, end: 20090609
  6. MONILAC [Concomitant]
     Dosage: 19.5 MG
     Route: 048
     Dates: start: 20090603, end: 20090609
  7. NAUZELIN [Concomitant]
     Dosage: 60 MG
     Route: 054
     Dates: start: 20090603, end: 20090603
  8. ARGAMATE [Concomitant]
     Dosage: 25 G
     Route: 048
     Dates: start: 20090604, end: 20090606
  9. VANCOMYCIN [Concomitant]
     Dosage: 2 G
     Route: 048
     Dates: start: 20090605, end: 20090608
  10. ENTERONON-R [Concomitant]
     Dosage: 3 G
     Route: 048
     Dates: start: 20090605, end: 20090608
  11. KALIMATE [Concomitant]
     Dosage: 45 G
     Route: 048
     Dates: start: 20090607, end: 20090609
  12. TAKEPRON [Concomitant]
     Dosage: 15 MG
     Route: 048
     Dates: start: 20090607, end: 20090609
  13. CRAVIT [Concomitant]
     Dosage: 400 MG
     Route: 048
     Dates: start: 20090602, end: 20090607
  14. INNOLET- R [Concomitant]
     Dosage: 10UT
     Route: 058
     Dates: start: 20090526, end: 20090609
  15. AMINOLEBAN [Concomitant]
     Dosage: 500 ML
     Route: 042
     Dates: start: 20090529, end: 20090608
  16. LASIX [Concomitant]
     Dosage: 400 MG
     Route: 042
     Dates: start: 20090607, end: 20090609

REACTIONS (5)
  - BLOOD GLUCOSE INCREASED [None]
  - CHOLANGITIS [None]
  - HYPERKALAEMIA [None]
  - PYREXIA [None]
  - RENAL FAILURE CHRONIC [None]
